FAERS Safety Report 7386344-2 (Version None)
Quarter: 2011Q1

REPORT INFORMATION
  Report Type: 
  Country: None (occurrence: None)
  Receive Date: 20110323
  Receipt Date: 20110311
  Transmission Date: 20110831
  Serious: Yes (Other)
  Sender: FDA-Public Use
  Company Number: AU-GDP-11410253

PATIENT
  Age: 18 Year
  Sex: Female

DRUGS (1)
  1. EPIDUO (ADAPALENE) (BENZOYL PEROXIDE) [Suspect]
     Indication: ACNE
     Dosage: (TOPICAL)
     Route: 061

REACTIONS (1)
  - DRUG HYPERSENSITIVITY [None]
